FAERS Safety Report 9149254 (Version 3)
Quarter: 2013Q2

REPORT INFORMATION
  Report Type: Spontaneous
  Country: US (occurrence: US)
  Receive Date: 20130308
  Receipt Date: 20130517
  Transmission Date: 20140414
  Serious: No
  Sender: FDA-Public Use
  Company Number: US-PFIZER INC-2013075550

PATIENT
  Age: 80 Year
  Sex: Female

DRUGS (6)
  1. REVATIO [Suspect]
     Indication: PULMONARY ARTERIAL HYPERTENSION
     Dosage: 20 MG, 3X/DAY
     Route: 048
     Dates: start: 20120807
  2. TRANDOLAPRIL [Concomitant]
     Dosage: 4 MG, 1X/DAY
  3. NEBIVOLOL [Concomitant]
     Dosage: 5 MG, 1X/DAY
  4. LOVASTATIN [Concomitant]
     Dosage: 40 MG, 1X/DAY
  5. AMLODIPINE [Concomitant]
     Dosage: 5 MG, 1X/DAY
  6. MULTIVITAMINS [Concomitant]
     Dosage: UNK

REACTIONS (2)
  - Drug ineffective [Unknown]
  - Malaise [Unknown]
